FAERS Safety Report 9305711 (Version 1)
Quarter: 2013Q2

REPORT INFORMATION
  Report Type: Spontaneous
  Country: US (occurrence: US)
  Receive Date: 20130523
  Receipt Date: 20130523
  Transmission Date: 20140414
  Serious: Yes (Other)
  Sender: FDA-Public Use
  Company Number: US-ASTRAZENECA-2013SE34571

PATIENT
  Age: 75 Year
  Sex: Male

DRUGS (8)
  1. METOPROLOL [Suspect]
     Route: 048
  2. OMEPRAZOLE [Suspect]
     Route: 048
  3. BRILINTA [Suspect]
     Indication: CORONARY ARTERIAL STENT INSERTION
     Route: 048
  4. BRILINTA [Suspect]
     Indication: CORONARY ARTERIAL STENT INSERTION
     Route: 048
  5. ASPRIN [Concomitant]
     Route: 048
  6. COUMADIN [Concomitant]
     Indication: ATRIAL FIBRILLATION
  7. LASIX [Concomitant]
  8. CARAFATE [Concomitant]

REACTIONS (1)
  - Gastrointestinal haemorrhage [Unknown]
